FAERS Safety Report 8450058-8 (Version None)
Quarter: 2012Q2

REPORT INFORMATION
  Report Type: 
  Country: None (occurrence: None)
  Receive Date: 20120614
  Receipt Date: 20120614
  Transmission Date: 20120825
  Serious: Yes (Other)
  Sender: FDA-Public Use
  Company Number: None

PATIENT
  Age: 52 Year
  Sex: Female
  Weight: 81.6475 kg

DRUGS (2)
  1. BUPROPRION HCL [Suspect]
     Indication: DEPRESSION
     Dosage: 150 1 A DAY
     Dates: start: 20100601, end: 20100628
  2. BUPROPRION HCL [Suspect]
     Indication: ANXIETY
     Dosage: 150 1 A DAY
     Dates: start: 20100601, end: 20100628

REACTIONS (5)
  - DEPRESSION [None]
  - ASTHENIA [None]
  - FEELING ABNORMAL [None]
  - PRODUCT SUBSTITUTION ISSUE [None]
  - DRUG INEFFECTIVE [None]
